FAERS Safety Report 24988722 (Version 1)
Quarter: 2025Q1

REPORT INFORMATION
  Report Type: Spontaneous
  Country: CA (occurrence: CA)
  Receive Date: 20250220
  Receipt Date: 20250220
  Transmission Date: 20250408
  Serious: Yes (Other)
  Sender: CSL BEHRING
  Company Number: CA-BEH-2025196051

PATIENT
  Age: 31 Year
  Sex: Female

DRUGS (5)
  1. HUMAN IMMUNOGLOBULIN G [Suspect]
     Active Substance: HUMAN IMMUNOGLOBULIN G
     Indication: Immunodeficiency common variable
     Dosage: UNK, QW(SOLUTION FOR INFUSION)
     Route: 058
  2. HUMAN IMMUNOGLOBULIN G [Suspect]
     Active Substance: HUMAN IMMUNOGLOBULIN G
     Dosage: UNK, QW(SOLUTION FOR INFUSION)
     Route: 042
  3. HUMAN IMMUNOGLOBULIN G [Suspect]
     Active Substance: HUMAN IMMUNOGLOBULIN G
     Dosage: UNK, QW
     Route: 058
  4. SARS-CoV-2 vaccine [Concomitant]
     Route: 065
  5. SOTROVIMAB [Concomitant]
     Active Substance: SOTROVIMAB
     Route: 065

REACTIONS (5)
  - Exposure during pregnancy [Unknown]
  - Influenza like illness [Unknown]
  - Seizure [Unknown]
  - Syncope [Unknown]
  - Off label use [Unknown]
